FAERS Safety Report 9331783 (Version 1)
Quarter: 2013Q2

REPORT INFORMATION
  Report Type: Spontaneous
  Country: NL (occurrence: None)
  Receive Date: 20130603
  Receipt Date: 20130603
  Transmission Date: 20140414
  Serious: Yes (Death)
  Sender: FDA-Public Use
  Company Number: TPA2013A04315

PATIENT
  Sex: Male

DRUGS (3)
  1. ADENURIC (FEBUXOSTAT) [Suspect]
     Indication: PRODUCT USED FOR UNKNOWN INDICATION
     Dates: start: 201111
  2. COLCHICINE (COLCHICINE) [Concomitant]
  3. METOPROLOL (METOPROLOL) [Concomitant]

REACTIONS (1)
  - Pulmonary embolism [None]
